FAERS Safety Report 17828043 (Version 1)
Quarter: 2020Q2

REPORT INFORMATION
  Report Type: Spontaneous
  Country: US (occurrence: US)
  Receive Date: 20200527
  Receipt Date: 20200527
  Transmission Date: 20200714
  Serious: No
  Sender: FDA-Public Use
  Company Number: US-MYLANLABS-2020M1049743

PATIENT
  Sex: Female
  Weight: 54 kg

DRUGS (2)
  1. YUPELRI [Suspect]
     Active Substance: REVEFENACIN
     Indication: CHRONIC OBSTRUCTIVE PULMONARY DISEASE
     Dosage: 1 VIAL/DAY
     Route: 055
     Dates: start: 202001
  2. ALBUTEROL                          /00139501/ [Concomitant]
     Active Substance: ALBUTEROL
     Indication: CHRONIC OBSTRUCTIVE PULMONARY DISEASE
     Dosage: 1 A DAY-ABOUT 6-7 HOURS AFTER YUPELRI
     Route: 055

REACTIONS (2)
  - Alopecia [Not Recovered/Not Resolved]
  - Drug ineffective [Not Recovered/Not Resolved]

NARRATIVE: CASE EVENT DATE: 20200301
